FAERS Safety Report 6345834-1 (Version None)
Quarter: 2009Q3

REPORT INFORMATION
  Report Type: 
  Country: None (occurrence: None)
  Receive Date: 20090909
  Receipt Date: 20090901
  Transmission Date: 20100115
  Serious: Yes (Death, Hospitalization)
  Sender: FDA-Public Use
  Company Number: A0805497A

PATIENT
  Age: 64 Year
  Sex: Male

DRUGS (10)
  1. AVANDIA [Suspect]
     Indication: DIABETES MELLITUS
     Dosage: 4MG PER DAY
     Route: 048
     Dates: start: 20010117, end: 20020321
  2. GLUCOPHAGE [Concomitant]
  3. GLUCOTROL XL [Concomitant]
  4. PREDNISONE TAB [Concomitant]
  5. LASIX [Concomitant]
  6. DILANTIN [Concomitant]
  7. PRAVACHOL [Concomitant]
  8. ASPIRIN [Concomitant]
  9. AZMACORT [Concomitant]
  10. PROVENTIL-HFA [Concomitant]

REACTIONS (1)
  - CARDIO-RESPIRATORY ARREST [None]
